FAERS Safety Report 13829043 (Version 2)
Quarter: 2017Q3

REPORT INFORMATION
  Report Type: Report from Study
  Country: NL (occurrence: NL)
  Receive Date: 20170803
  Receipt Date: 20170821
  Transmission Date: 20171127
  Serious: Yes (Hospitalization)
  Sender: FDA-Public Use
  Company Number: NL-ROCHE-1969184

PATIENT
  Age: 55 Year
  Sex: Female

DRUGS (10)
  1. PARACETAMOL [Concomitant]
     Active Substance: ACETAMINOPHEN
     Route: 065
     Dates: start: 20170621
  2. OXYCODON [Concomitant]
     Active Substance: OXYCODONE
     Dosage: AS NEEDED TILL 30 MG
     Route: 065
     Dates: start: 20170626
  3. LANTUS [Concomitant]
     Active Substance: INSULIN GLARGINE
     Dosage: DAILY DOSE 20E.
     Route: 065
     Dates: end: 20170725
  4. BEVACIZUMAB. [Suspect]
     Active Substance: BEVACIZUMAB
     Indication: TRIPLE NEGATIVE BREAST CANCER
     Dosage: ON DAY 1 AND DAY 15 OF 28 DAY CYCLE?DATE OF MOST RECENT DOSE: 22/JUN/2017
     Route: 042
     Dates: start: 20170608
  5. CARBOPLATIN. [Suspect]
     Active Substance: CARBOPLATIN
     Indication: TRIPLE NEGATIVE BREAST CANCER
     Route: 042
     Dates: start: 20170608
  6. CYCLOPHOSPHAMIDE. [Suspect]
     Active Substance: CYCLOPHOSPHAMIDE
     Indication: TRIPLE NEGATIVE BREAST CANCER
     Route: 042
     Dates: start: 20170608
  7. IBUPROFEN. [Concomitant]
     Active Substance: IBUPROFEN
     Route: 065
     Dates: start: 20170625, end: 20170626
  8. LANTUS [Concomitant]
     Active Substance: INSULIN GLARGINE
     Dosage: DAILY DOSE 16E.
     Route: 065
     Dates: start: 20170725
  9. LANTUS [Concomitant]
     Active Substance: INSULIN GLARGINE
     Dosage: DAILY DOSE 12 E.
     Route: 065
     Dates: start: 20170726
  10. CYCLOPHOSPHAMIDE. [Suspect]
     Active Substance: CYCLOPHOSPHAMIDE
     Dosage: MOST RECENT DOSE PRIOR TO AE
     Route: 042
     Dates: start: 20170706

REACTIONS (4)
  - Anaemia [Recovering/Resolving]
  - Groin pain [Not Recovered/Not Resolved]
  - Hypoglycaemia [Recovering/Resolving]
  - Bone pain [Recovering/Resolving]

NARRATIVE: CASE EVENT DATE: 20170620
